FAERS Safety Report 20943220 (Version 3)
Quarter: 2022Q2

REPORT INFORMATION
  Report Type: Spontaneous
  Country: FR (occurrence: FR)
  Receive Date: 20220610
  Receipt Date: 20220623
  Transmission Date: 20220721
  Serious: Yes (Life-Threatening, Hospitalization, Other)
  Sender: FDA-Public Use
  Company Number: FR-002147023-NVSC2020FR157708

PATIENT
  Age: 57 Year
  Sex: Male

DRUGS (7)
  1. EVEROLIMUS [Interacting]
     Active Substance: EVEROLIMUS
     Indication: Liver transplant
     Dosage: UNK
     Route: 065
  2. EVEROLIMUS [Interacting]
     Active Substance: EVEROLIMUS
     Indication: Immunosuppressant drug therapy
  3. EVEROLIMUS [Interacting]
     Active Substance: EVEROLIMUS
     Indication: Immunosuppression
  4. PANTOPRAZOLE [Suspect]
     Active Substance: PANTOPRAZOLE
     Indication: Shock haemorrhagic
     Dosage: 80 MILLIGRAM, ONCE A DAY
     Route: 042
  5. APIXABAN [Interacting]
     Active Substance: APIXABAN
     Indication: Congestive cardiomyopathy
     Dosage: 5 MILLIGRAM, ONCE A DAY DOSAGE OF APIXABAN WAS REDUCED TO LIMIT INTERACTION (
     Route: 065
  6. APIXABAN [Interacting]
     Active Substance: APIXABAN
     Indication: Ventricular fibrillation
     Dosage: DOSAGE OF APIXABAN WAS REDUCED TO LIMIT INTERACTION UNK
     Route: 065
  7. EPINEPHRINE [Suspect]
     Active Substance: EPINEPHRINE
     Indication: Shock haemorrhagic
     Dosage: UNK
     Route: 065

REACTIONS (6)
  - Gastroduodenal haemorrhage [Recovered/Resolved]
  - Shock haemorrhagic [Recovering/Resolving]
  - Drug interaction [Unknown]
  - Drug ineffective [Unknown]
  - Off label use [Unknown]
  - Cardiac arrest [Unknown]
